FAERS Safety Report 6064453-8 (Version None)
Quarter: 2009Q1

REPORT INFORMATION
  Report Type: 
  Country: None (occurrence: None)
  Receive Date: 20090203
  Receipt Date: 20090203
  Transmission Date: 20090719
  Serious: Yes (Other)
  Sender: FDA-Public Use
  Company Number: None

PATIENT
  Sex: Female
  Weight: 86.8 kg

DRUGS (3)
  1. REMICADE [Suspect]
     Indication: CROHN'S DISEASE
     Dosage: 5MG/KG Q 8 WEEKS IV
     Route: 042
     Dates: start: 20061110, end: 20080806
  2. REMICADE [Suspect]
     Indication: FISTULA
     Dosage: 5MG/KG Q 8 WEEKS IV
     Route: 042
     Dates: start: 20061110, end: 20080806
  3. AZATHIOPRINE [Concomitant]

REACTIONS (1)
  - OVARIAN EPITHELIAL CANCER STAGE III [None]
